FAERS Safety Report 8145344-5 (Version None)
Quarter: 2012Q1

REPORT INFORMATION
  Report Type: 
  Country: None (occurrence: None)
  Receive Date: 20120217
  Receipt Date: 20120208
  Transmission Date: 20120608
  Serious: Yes (Hospitalization)
  Sender: FDA-Public Use
  Company Number: US-ABBOTT-12P-163-0902929-00

PATIENT
  Sex: Female
  Weight: 70.37 kg

DRUGS (2)
  1. HUMIRA [Suspect]
     Indication: RHEUMATOID ARTHRITIS
  2. HUMIRA [Suspect]

REACTIONS (7)
  - DEVICE FAILURE [None]
  - DYSURIA [None]
  - HUMERUS FRACTURE [None]
  - DRUG INEFFECTIVE [None]
  - URINARY INCONTINENCE [None]
  - FALL [None]
  - URINARY TRACT INFECTION [None]
